FAERS Safety Report 8482890-9 (Version None)
Quarter: 2012Q3

REPORT INFORMATION
  Report Type: 
  Country: None (occurrence: None)
  Receive Date: 20120702
  Receipt Date: 20120625
  Transmission Date: 20120928
  Serious: Yes (Death, Hospitalization)
  Sender: FDA-Public Use
  Company Number: US-ACTELION-A-US2011-56416

PATIENT

DRUGS (6)
  1. EPOPROSTENOL SODIUM [Suspect]
     Indication: PULMONARY ARTERIAL HYPERTENSION
     Dosage: 20 NG/KG, PER MIN
     Route: 042
     Dates: start: 20100826, end: 20120604
  2. OXYGEN [Concomitant]
  3. TRACLEER [Suspect]
     Indication: PULMONARY ARTERIAL HYPERTENSION
     Dosage: 125 MG, BID
     Route: 048
     Dates: start: 20101101, end: 20120604
  4. TRACLEER [Suspect]
     Dosage: 62.5 MG, BID
     Route: 048
     Dates: start: 20100913
  5. VENTAVIS [Suspect]
     Indication: PULMONARY ARTERIAL HYPERTENSION
     Route: 055
  6. ADCIRCA [Concomitant]

REACTIONS (6)
  - RIGHT VENTRICULAR FAILURE [None]
  - SYSTEMIC LUPUS ERYTHEMATOSUS [None]
  - DISEASE PROGRESSION [None]
  - PNEUMONIA [None]
  - LUNG INFILTRATION [None]
  - PULMONARY ARTERIAL HYPERTENSION [None]
